FAERS Safety Report 6995919 (Version 4)
Quarter: 2013Q3

REPORT INFORMATION
  Report Type: Spontaneous
  Country: GB (occurrence: GB)
  Receive Date: 20090515
  Receipt Date: 20130710
  Transmission Date: 20140515
  Serious: Yes (Life-Threatening, Hospitalization, Disabling, Other)
  Sender: FDA-Public Use
  Company Number: GB-PFIZER INC-2007039224

PATIENT
  Age: 38 Year
  Sex: Female
  Weight: 60 kg

DRUGS (18)
  1. BUMETANIDE [Concomitant]
     Dosage: THREE IN THE MORNING AND TWO AT NIGHT
  2. DOSULEPIN [Concomitant]
  3. FUROSEMIDE [Concomitant]
     Dosage: 40 MG, 1X/DAY
  4. GABAPENTIN [Concomitant]
     Dosage: 300 MG, 2X/DAY
  5. ACTRAPID [Concomitant]
     Dosage: AS DIRECTED
  6. KETOCONAZOLE [Concomitant]
     Dosage: 2% AS DIRECTED
  7. LEVOTHYROXINE [Concomitant]
     Dosage: 50 MCG DAILY AND 100 MCG TWO DAILY
  8. RAMIPRIL [Concomitant]
     Dosage: 10 MG, 1X/DAY
  9. TRAMADOL [Concomitant]
     Dosage: 100 MG, 2X/DAY
  10. SERETIDE [Concomitant]
     Dosage: TWO DOSE FORMS TWICE DAILY
  11. INSULIN [Concomitant]
  12. ATORVASTATIN [Concomitant]
  13. SALMETEROL [Concomitant]
     Dosage: 2 DF, 2X/DAY
     Route: 055
  14. FLUTICASONE PROPIONATE [Concomitant]
     Dosage: 2 DF, 2X/DAY
     Route: 055
  15. IBUPROFEN [Suspect]
     Indication: PRODUCT USED FOR UNKNOWN INDICATION
     Dosage: UNK
  16. CHAMPIX [Suspect]
     Indication: SMOKING CESSATION THERAPY
     Dosage: 0.5 MG, 2X/DAY
     Route: 048
     Dates: start: 20070402, end: 200705
  17. APROVEL [Concomitant]
     Dosage: 150 MG, 1X/DAY
  18. ACETYLSALICYLIC ACID [Concomitant]
     Dosage: 75 MG, 1X/DAY

REACTIONS (8)
  - Insomnia [Recovering/Resolving]
  - Liver function test abnormal [Recovering/Resolving]
  - Oedema [Not Recovered/Not Resolved]
  - Fatigue [Not Recovered/Not Resolved]
  - Alanine aminotransferase increased [Recovering/Resolving]
  - Blood alkaline phosphatase increased [Unknown]
  - Condition aggravated [Unknown]
  - Gamma-glutamyltransferase increased [Recovering/Resolving]
